FAERS Safety Report 12995863 (Version 1)
Quarter: 2016Q4

REPORT INFORMATION
  Report Type: Spontaneous
  Country: NO (occurrence: NO)
  Receive Date: 20161202
  Receipt Date: 20161202
  Transmission Date: 20170207
  Serious: Yes (Hospitalization)
  Sender: FDA-Public Use
  Company Number: NO-GLAXOSMITHKLINE-NO2016174978

PATIENT
  Age: 88 Year
  Sex: Male

DRUGS (19)
  1. IMOVANE [Interacting]
     Active Substance: ZOPICLONE
     Indication: INSOMNIA
     Dosage: 5 MG BEFORE BEDTIME REGULARLY/ALMOST EVERY DAY.
     Route: 065
  2. SPIRIX [Concomitant]
     Active Substance: SPIRONOLACTONE
     Indication: DIURETIC THERAPY
     Dosage: 25 MG, QD
  3. ALBYL-E [Concomitant]
     Active Substance: ASPIRIN\MAGNESIUM OXIDE
     Indication: ANTICOAGULANT THERAPY
     Dosage: 75 MG, QD
  4. TRIOBE [Concomitant]
     Indication: VITAMIN SUPPLEMENTATION
     Dosage: UNK
  5. HIPREX [Concomitant]
     Active Substance: METHENAMINE HIPPURATE
     Indication: PROPHYLAXIS URINARY TRACT INFECTION
     Dosage: 1 G, BID
  6. SCOPODERM TTS [Suspect]
     Active Substance: SCOPOLAMINE
     Indication: DROOLING
     Dosage: 1 MG/72 HOURS
     Dates: start: 20161101, end: 20161106
  7. BRIMORATIO [Concomitant]
     Indication: GLAUCOMA
     Dosage: UNK
  8. PARACET [Concomitant]
     Active Substance: ACETAMINOPHEN
     Indication: PAIN
     Dosage: 500 MG, QID
  9. STALEVO [Concomitant]
     Active Substance: CARBIDOPA\ENTACAPONE\LEVODOPA
     Indication: PARKINSON^S DISEASE
     Dosage: 100 MG LEVODOPA + 25 MG CARBIDOPA + 200 MG ENTACAPONE
  10. XALATAN [Concomitant]
     Active Substance: LATANOPROST
     Indication: GLAUCOMA
     Dosage: UNK
  11. PERSANTIN RETARD [Concomitant]
     Active Substance: DIPYRIDAMOLE
     Indication: ANTICOAGULANT THERAPY
     Dosage: 200 MG, BID
  12. NYCOPLUS FERRO-RETARD [Concomitant]
     Indication: MINERAL SUPPLEMENTATION
     Dosage: 100 MG, QD
  13. MOVICOL [Concomitant]
     Active Substance: POLYETHYLENE GLYCOL 3350\POTASSIUM CHLORIDE\SODIUM BICARBONATE\SODIUM CHLORIDE
     Indication: CONSTIPATION
     Dosage: 3 TIMES A DAY IF NECCESSARY.
     Dates: start: 201510
  14. SINEMET [Concomitant]
     Active Substance: CARBIDOPA\LEVODOPA
     Indication: PARKINSON^S DISEASE
     Dosage: UNK
  15. STALEVO [Concomitant]
     Active Substance: CARBIDOPA\ENTACAPONE\LEVODOPA
     Dosage: 150 MG CARBIDOPA + 37,5 MG LEVODOPA + 200 MG ENTACAPONE
  16. COSOPT [Concomitant]
     Active Substance: DORZOLAMIDE HYDROCHLORIDE\TIMOLOL MALEATE
     Indication: GLAUCOMA
     Dosage: 20 MG DORZOLAMIDE + 5 MG/ML TIMOLOL
  17. ARTELAC [Concomitant]
     Active Substance: HYPROMELLOSES
     Indication: DRY EYE
     Dosage: UNK
  18. SIFROL [Concomitant]
     Active Substance: PRAMIPEXOLE
     Indication: PARKINSON^S DISEASE
     Dosage: 2.1 MG, QD
  19. BETMIGA [Concomitant]
     Active Substance: MIRABEGRON
     Indication: MICTURITION DISORDER
     Dosage: 50 MG, QD

REACTIONS (2)
  - Drug interaction [Recovered/Resolved]
  - Fall [Recovered/Resolved]

NARRATIVE: CASE EVENT DATE: 20161105
